FAERS Safety Report 5478599-6 (Version None)
Quarter: 2007Q4

REPORT INFORMATION
  Report Type: 
  Country: None (occurrence: None)
  Receive Date: 20071005
  Receipt Date: 20070925
  Transmission Date: 20080405
  Serious: Yes (Life-Threatening, Hospitalization)
  Sender: FDA-Public Use
  Company Number: NLWYE367425SEP07

PATIENT
  Sex: Female
  Weight: 50 kg

DRUGS (6)
  1. EFFEXOR XR [Suspect]
     Indication: DEPRESSION
     Dates: start: 20060101, end: 20070101
  2. ASPIRIN [Concomitant]
     Dates: start: 20060101
  3. PANTOPRAZOLE SODIUM [Concomitant]
     Dates: start: 20060101
  4. MOVICOL [Concomitant]
     Dates: start: 20070701
  5. COLECALCIFEROL [Concomitant]
     Dates: start: 20060101
  6. LACTULOSE [Concomitant]
     Dates: start: 20070701

REACTIONS (10)
  - ANGINA PECTORIS [None]
  - ANTIDEPRESSANT DRUG LEVEL INCREASED [None]
  - CONTUSION [None]
  - DRUG INEFFECTIVE [None]
  - ELECTROCARDIOGRAM QT PROLONGED [None]
  - FALL [None]
  - PAIN [None]
  - SPINAL COMPRESSION FRACTURE [None]
  - SUBILEUS [None]
  - SUPRAVENTRICULAR TACHYCARDIA [None]
